FAERS Safety Report 11822445 (Version 1)
Quarter: 2015Q4

REPORT INFORMATION
  Report Type: Spontaneous
  Country: US (occurrence: US)
  Receive Date: 20151210
  Receipt Date: 20151210
  Transmission Date: 20160305
  Serious: Yes (Hospitalization)
  Sender: FDA-Public Use
  Company Number: US-JNJFOC-20150514384

PATIENT
  Sex: Male

DRUGS (5)
  1. IMBRUVICA [Suspect]
     Active Substance: IBRUTINIB
     Indication: CHRONIC LYMPHOCYTIC LEUKAEMIA
     Route: 048
     Dates: start: 20150127, end: 2015
  2. FISH OIL [Concomitant]
     Active Substance: FISH OIL
  3. KLONOPIN [Concomitant]
     Active Substance: CLONAZEPAM
  4. ALPRENOLOL [Concomitant]
  5. NIACIN. [Concomitant]
     Active Substance: NIACIN

REACTIONS (1)
  - Hypersensitivity [Unknown]

NARRATIVE: CASE EVENT DATE: 2015
